FAERS Safety Report 25233445 (Version 13)
Quarter: 2025Q4

REPORT INFORMATION
  Report Type: Spontaneous
  Country: EU (occurrence: EU)
  Receive Date: 20250424
  Receipt Date: 20251203
  Transmission Date: 20260118
  Serious: Yes (Life-Threatening, Hospitalization)
  Sender: SANDOZ
  Company Number: EU-SZ09-GXKR2008DK05802

PATIENT
  Age: 62 Year
  Sex: Male

DRUGS (31)
  1. CIPROFLOXACIN [Suspect]
     Active Substance: CIPROFLOXACIN
     Dosage: 400 MG,QD
     Route: 065
     Dates: start: 20080430, end: 20080503
  2. CIPROFLOXACIN [Suspect]
     Active Substance: CIPROFLOXACIN
     Indication: Pyrexia
     Dosage: 400 MG, BID (800 MG, QD)
     Route: 065
     Dates: start: 20080430, end: 20080503
  3. CIPROFLOXACIN [Suspect]
     Active Substance: CIPROFLOXACIN
     Dosage: 800 MG, QD (1X/DAY)
     Route: 065
     Dates: start: 20080430, end: 20080503
  4. CIPROFLOXACIN [Suspect]
     Active Substance: CIPROFLOXACIN
     Dosage: 800 MG, QD
     Route: 065
     Dates: start: 20080430, end: 20080503
  5. FLUCONAZOLE [Suspect]
     Active Substance: FLUCONAZOLE
     Indication: Pyrexia
     Dosage: 200 MG, QD (200 MG, 1X/DAY)
     Route: 065
     Dates: start: 20080429, end: 20080519
  6. FLUCONAZOLE [Suspect]
     Active Substance: FLUCONAZOLE
     Dosage: 200 MG, QD (200 MG, 1X/DAY)
     Route: 065
     Dates: start: 20080429, end: 20080519
  7. LANSOPRAZOLE [Suspect]
     Active Substance: LANSOPRAZOLE
     Indication: Gastric ulcer
     Dosage: 120 MG, QD (30 MG, 2X /DAY)
     Route: 048
     Dates: start: 20080507, end: 20080523
  8. LANSOPRAZOLE [Suspect]
     Active Substance: LANSOPRAZOLE
     Dosage: 120 MG, QD (60 MG/DAY)
     Route: 048
     Dates: start: 20080507, end: 20080523
  9. LANSOPRAZOLE [Suspect]
     Active Substance: LANSOPRAZOLE
     Dosage: 30 MG, QD
     Route: 048
     Dates: start: 20080507, end: 20080523
  10. LANSOPRAZOLE [Suspect]
     Active Substance: LANSOPRAZOLE
     Dosage: 60 MG, QD, (30 MG, 2X PER DAY)
     Route: 048
     Dates: start: 20080507, end: 20080523
  11. MEROPENEM [Suspect]
     Active Substance: MEROPENEM
     Dosage: 1000 MG, UNK
     Route: 042
     Dates: start: 20080511, end: 20080516
  12. MEROPENEM [Suspect]
     Active Substance: MEROPENEM
     Dosage: 1000 MG, QD
     Route: 042
     Dates: start: 20080511, end: 20080516
  13. MEROPENEM [Suspect]
     Active Substance: MEROPENEM
     Indication: Pyrexia
     Dosage: 3000 MG, QD
     Route: 042
     Dates: start: 20080511, end: 20080516
  14. PANTOPRAZOLE [Suspect]
     Active Substance: PANTOPRAZOLE
     Dosage: 40 MG, QD, (40 MG, 1X PER DAY)
     Route: 048
     Dates: start: 20080428, end: 20080530
  15. PANTOPRAZOLE [Suspect]
     Active Substance: PANTOPRAZOLE
     Indication: Abdominal pain
     Dosage: 40 MG, QD
     Route: 048
     Dates: start: 20080428, end: 20080507
  16. PANTOPRAZOLE [Suspect]
     Active Substance: PANTOPRAZOLE
     Dosage: 40 MG, QD
     Route: 048
     Dates: start: 20080527, end: 20080530
  17. PANTOPRAZOLE SODIUM [Suspect]
     Active Substance: PANTOPRAZOLE SODIUM
     Indication: Abdominal pain
     Dosage: 40 MG, QD
     Route: 048
     Dates: start: 20080428, end: 20080530
  18. PANTOPRAZOLE SODIUM [Suspect]
     Active Substance: PANTOPRAZOLE SODIUM
     Dosage: 40 MG, QD (1X/DAY)
     Route: 048
     Dates: start: 20080428, end: 20080507
  19. PANTOPRAZOLE SODIUM [Suspect]
     Active Substance: PANTOPRAZOLE SODIUM
     Dosage: 40 MG, QD (40 MG, 1X/DAY)
     Route: 048
     Dates: start: 20080527, end: 20080530
  20. B-combin [Concomitant]
     Indication: Hypovitaminosis
     Dosage: 3 DOSAGE FORM, QD
     Route: 065
     Dates: start: 20080508
  21. CEFUROXIME [Concomitant]
     Active Substance: CEFUROXIME
     Indication: Pyrexia
     Dosage: 2250 MG, QD
     Route: 030
     Dates: start: 20080430, end: 20080510
  22. CEFUROXIME [Concomitant]
     Active Substance: CEFUROXIME
     Dosage: 4500 MG, QD
     Route: 065
     Dates: start: 20080428, end: 20080430
  23. THIAMINE [Concomitant]
     Active Substance: THIAMINE
     Indication: Hypovitaminosis
     Dosage: 300 MG, QD (1X/DAY)
     Route: 048
     Dates: start: 20080428
  24. THIAMINE [Concomitant]
     Active Substance: THIAMINE
     Indication: Hypovitaminosis
     Dosage: 300 MG
     Route: 048
     Dates: start: 20080428
  25. VITAMIN B [Concomitant]
     Active Substance: VITAMIN B
     Indication: Hypovitaminosis
     Dosage: UNK
     Route: 065
  26. VITAMIN B COMPLEX [Concomitant]
     Active Substance: CYANOCOBALAMIN\DEXPANTHENOL\NIACINAMIDE\PYRIDOXINE HYDROCHLORIDE\RIBOFLAVIN 5^-PHOSPHATE SODIUM\THIA
     Indication: Hypovitaminosis
     Dosage: 3 DF, QD
     Route: 065
  27. ZINACEF [Concomitant]
     Active Substance: CEFUROXIME SODIUM
     Indication: Pyrexia
     Dosage: 13500 MG, QD (4500 MG, QD)
     Route: 030
     Dates: start: 20080428, end: 20080430
  28. ZINACEF [Concomitant]
     Active Substance: CEFUROXIME SODIUM
     Dosage: 1500 MG, QD
     Route: 030
     Dates: start: 20080424, end: 20080430
  29. ZINACEF [Concomitant]
     Active Substance: CEFUROXIME SODIUM
     Dosage: 2250 MG, QD (750 MG, 3X/DAY)
     Route: 030
     Dates: start: 20080430, end: 20080510
  30. ZINACEF [Concomitant]
     Active Substance: CEFUROXIME SODIUM
     Dosage: 4500 MG, QD, 1500 MG, 3X PER DAY
     Route: 030
     Dates: start: 20080428, end: 20080430
  31. ZINACEF [Concomitant]
     Active Substance: CEFUROXIME SODIUM
     Indication: Pyrexia
     Dosage: UNK
     Route: 065

REACTIONS (8)
  - Paraesthesia [Recovered/Resolved]
  - Pain in extremity [Recovered/Resolved]
  - Oedema peripheral [Unknown]
  - Asthenia [Unknown]
  - Rash maculo-papular [Unknown]
  - Tremor [Recovered/Resolved]
  - Rash [Recovered/Resolved]
  - Toxic epidermal necrolysis [Recovered/Resolved]

NARRATIVE: CASE EVENT DATE: 20080525
